FAERS Safety Report 9203168 (Version 2)
Quarter: 2013Q2

REPORT INFORMATION
  Report Type: Spontaneous
  Country: DE (occurrence: None)
  Receive Date: 20130328
  Receipt Date: 20130401
  Transmission Date: 20140414
  Serious: Yes (Other)
  Sender: FDA-Public Use
  Company Number: SYM-2013-01597

PATIENT
  Age: 37 Year
  Sex: Male

DRUGS (1)
  1. ELONTRIL [Suspect]
     Indication: DEPRESSION
     Route: 048
     Dates: start: 20130207, end: 20130225

REACTIONS (2)
  - Convulsion [None]
  - Electroencephalogram abnormal [None]
